FAERS Safety Report 6518284-2 (Version None)
Quarter: 2009Q4

REPORT INFORMATION
  Report Type: 
  Country: None (occurrence: None)
  Receive Date: 20091224
  Receipt Date: 20091222
  Transmission Date: 20100525
  Serious: Yes (Death, Hospitalization)
  Sender: FDA-Public Use
  Company Number: DK-ROCHE-672079

PATIENT
  Sex: Female

DRUGS (12)
  1. BEVACIZUMAB [Suspect]
     Indication: GLIOBLASTOMA MULTIFORME
     Dosage: FREQUENCY: Q2WK  DOSAGE FORM: INFUSION  PERMANENTLY DISCONTINUED
     Route: 042
     Dates: start: 20090811, end: 20091110
  2. TEMOZOLOMIDE [Suspect]
     Indication: GLIOBLASTOMA MULTIFORME
     Dosage: THERAPY PERMANENTLY INTERRUPED   FREQUENCY REPORTED AS: QD
     Route: 048
     Dates: start: 20090811, end: 20091118
  3. TRIMOPAN [Concomitant]
     Dates: start: 20091124
  4. NEUPOGEN [Concomitant]
     Dosage: DRUG REPORTED AS: NEUPOGEN, 0.3 MG/ML
     Dates: start: 20091123
  5. DIOVAN [Concomitant]
     Dosage: TOTAL DAILY DOSE REPORTED AS: 160/12.5 MG
  6. SIMVASTATIN [Concomitant]
  7. PREDNISOLONE [Concomitant]
     Dosage: DRUG REPORTED AS: PREDNISOLON(STUDY DRUG PRE-ME)
     Dates: start: 20090811
  8. IRON SUPPLEMENT [Concomitant]
     Dosage: DRUG REPORTED AS: JEM C (IRON SUPPLEMENT)
  9. LANSOPRAZOL [Concomitant]
     Dosage: DRUG REPORTED AS: LANZOPRAZOL
  10. SERETIDE [Concomitant]
     Dosage: TOTAL DAILY DOSE REPORTED AS: 100MG/1G
  11. SULFOTRIM [Concomitant]
     Dosage: TOTAL DAILY DOSE REPORTED AS: 2 TABLETS TIW
     Dates: start: 20091013, end: 20091118
  12. ZOFRAN [Concomitant]
     Dosage: DRUG REPORTED AS: ZOFRAN (STUDY DRUG PRE-MED)
     Dates: start: 20090411

REACTIONS (3)
  - FEBRILE NEUTROPENIA [None]
  - PANCYTOPENIA [None]
  - THROMBOCYTOPENIA [None]
